FAERS Safety Report 10932865 (Version 1)
Quarter: 2015Q1

REPORT INFORMATION
  Report Type: Spontaneous
  Country: US (occurrence: None)
  Receive Date: 20150319
  Receipt Date: 20150319
  Transmission Date: 20150721
  Serious: No
  Sender: FDA-Public Use
  Company Number: 2014CT000211

PATIENT
  Age: 67 Year
  Sex: Female
  Weight: 53.52 kg

DRUGS (2)
  1. LOSARTAN [Concomitant]
     Active Substance: LOSARTAN
  2. KORLYM [Suspect]
     Active Substance: MIFEPRISTONE
     Indication: CUSHING^S SYNDROME
     Route: 048
     Dates: start: 20141121

REACTIONS (7)
  - Palpitations [None]
  - Fatigue [None]
  - Feeling abnormal [None]
  - Insomnia [None]
  - Nausea [None]
  - Panic attack [None]
  - Headache [None]

NARRATIVE: CASE EVENT DATE: 20141121
